FAERS Safety Report 6245296-9 (Version None)
Quarter: 2009Q2

REPORT INFORMATION
  Report Type: 
  Country: None (occurrence: None)
  Receive Date: 20090623
  Receipt Date: 20090623
  Transmission Date: 20091009
  Serious: Yes (Other)
  Sender: FDA-Public Use
  Company Number: None

PATIENT
  Sex: Male
  Weight: 88.4514 kg

DRUGS (1)
  1. EFFEXOR [Suspect]
     Indication: ANXIETY
     Dosage: 75MG 1 PO
     Route: 048
     Dates: start: 20070710, end: 20090620

REACTIONS (3)
  - ASTHENIA [None]
  - FATIGUE [None]
  - HEPATIC STEATOSIS [None]
